FAERS Safety Report 12575960 (Version 2)
Quarter: 2016Q3

REPORT INFORMATION
  Report Type: Spontaneous
  Country: US (occurrence: US)
  Receive Date: 20160720
  Receipt Date: 20160916
  Transmission Date: 20161109
  Serious: No
  Sender: FDA-Public Use
  Company Number: US-ALKERMES INC.-ALK-2016-001006

PATIENT
  Age: 36 Year
  Sex: Male
  Weight: 122.45 kg

DRUGS (7)
  1. CREATINE MONOHYDRATE [Suspect]
     Active Substance: CREATINE MONOHYDRATE
     Indication: MUSCULAR WEAKNESS
     Dosage: UNK
  2. REMERON [Concomitant]
     Active Substance: MIRTAZAPINE
     Indication: SCHIZOPHRENIA
     Dosage: 45 MG, QHS
     Route: 048
  3. TRILEPTAL [Concomitant]
     Active Substance: OXCARBAZEPINE
     Indication: DEPRESSION
  4. ARISTADA [Suspect]
     Active Substance: ARIPIPRAZOLE LAUROXIL
     Indication: SCHIZOPHRENIA
     Dosage: 662 MG, QMO
     Route: 030
     Dates: start: 20160318
  5. OXCARBAZEPINE. [Concomitant]
     Active Substance: OXCARBAZEPINE
     Indication: SEIZURE
     Dosage: UNK, Q6H
  6. TRILEPTAL [Concomitant]
     Active Substance: OXCARBAZEPINE
     Indication: ANXIETY
     Dosage: QID
     Route: 048
  7. REMERON [Concomitant]
     Active Substance: MIRTAZAPINE
     Indication: SLEEP DISORDER

REACTIONS (6)
  - Schizophrenia [Unknown]
  - Antisocial behaviour [Unknown]
  - Drug effect decreased [Unknown]
  - Paranoia [Unknown]
  - Inappropriate affect [Unknown]
  - Abnormal behaviour [Unknown]
